FAERS Safety Report 10912285 (Version 1)
Quarter: 2015Q1

REPORT INFORMATION
  Report Type: Spontaneous
  Country: None (occurrence: None)
  Receive Date: 20150310
  Receipt Date: 20150310
  Transmission Date: 20150721
  Serious: No
  Sender: FDA-Public Use
  Company Number: None

PATIENT
  Age: 35 Year
  Sex: Male

DRUGS (1)
  1. NORCO [Suspect]
     Active Substance: ACETAMINOPHEN\HYDROCODONE BITARTRATE
     Indication: PAIN MANAGEMENT
     Dosage: 1 PILL EVERY 4 HOURS
     Route: 048
     Dates: start: 20150225, end: 20150308

REACTIONS (3)
  - Product lot number issue [None]
  - Drug effect decreased [None]
  - Suspected counterfeit product [None]

NARRATIVE: CASE EVENT DATE: 20150225
